FAERS Safety Report 8957424 (Version 1)
Quarter: 2012Q4

REPORT INFORMATION
  Report Type: 
  Country: FR (occurrence: FR)
  Receive Date: 20121211
  Receipt Date: 20121211
  Transmission Date: 20130627
  Serious: Yes (Hospitalization)
  Sender: FDA-Public Use
  Company Number: FR-ROCHE-1165443

PATIENT
  Age: 50 Year
  Sex: Male

DRUGS (5)
  1. VEMURAFENIB [Suspect]
     Indication: PRODUCT USED FOR UNKNOWN INDICATION
     Route: 048
     Dates: start: 201201
  2. PARACETAMOL [Concomitant]
  3. LYRICA [Concomitant]
  4. PROFENID [Concomitant]
  5. MORPHINE [Concomitant]

REACTIONS (1)
  - Sciatica [Unknown]
